FAERS Safety Report 6219272-6 (Version None)
Quarter: 2009Q2

REPORT INFORMATION
  Report Type: 
  Country: None (occurrence: None)
  Receive Date: 20090609
  Receipt Date: 20090602
  Transmission Date: 20091009
  Serious: Yes (Death)
  Sender: FDA-Public Use
  Company Number: US-ROCHE-617250

PATIENT
  Sex: Female
  Weight: 88.9 kg

DRUGS (6)
  1. PEGASYS [Suspect]
     Indication: HEPATITIS C
     Dosage: DOSE: 180MCG/0.5ML; TOOK ONE DOSE;
     Route: 058
     Dates: start: 20090212, end: 20090212
  2. RIBAPAK [Suspect]
     Indication: HEPATITIS C
     Dosage: DOSE: 600 MG IN AM AND 400 MG IN PM
     Route: 048
     Dates: start: 20090212, end: 20090219
  3. TRAMADOL HCL [Concomitant]
     Indication: PAIN
     Dosage: AS NEEDED
     Route: 048
  4. EFFEXOR XR [Concomitant]
     Indication: PROPHYLAXIS
     Route: 048
     Dates: start: 20090116
  5. VALTREX [Concomitant]
     Dates: start: 20081209
  6. FUROSEMIDE [Concomitant]
     Dates: start: 20090116

REACTIONS (8)
  - ANOREXIA [None]
  - ASTHENIA [None]
  - DEATH [None]
  - DIZZINESS [None]
  - FLUID INTAKE REDUCED [None]
  - NAUSEA [None]
  - VISUAL IMPAIRMENT [None]
  - VOMITING [None]
